FAERS Safety Report 5366952-0 (Version None)
Quarter: 2007Q2

REPORT INFORMATION
  Report Type: 
  Country: None (occurrence: None)
  Receive Date: 20070622
  Receipt Date: 20070612
  Transmission Date: 20071010
  Serious: Yes (Hospitalization)
  Sender: FDA-Public Use
  Company Number: GB-AMGEN-UK226323

PATIENT
  Sex: Female

DRUGS (16)
  1. PANITUMUMAB [Suspect]
     Indication: COLORECTAL CANCER
     Route: 042
     Dates: start: 20070205
  2. OXALIPLATIN [Concomitant]
  3. FLUOROURACIL [Concomitant]
  4. LEUCOVORIN CALCIUM [Concomitant]
  5. PARACETAMOL [Concomitant]
     Route: 048
  6. ELLESTE-DUET [Concomitant]
     Route: 048
  7. DEXAMETHASONE 0.5MG TAB [Concomitant]
     Route: 048
     Dates: start: 20070205
  8. GRANISETRON [Concomitant]
     Route: 042
     Dates: start: 20070205
  9. DOMPERIDONE [Concomitant]
     Route: 047
     Dates: start: 20070205
  10. DOXYCYCLINE [Concomitant]
     Route: 061
     Dates: start: 20070212
  11. ACETAMINOPHEN AND CODEINE PHOSPHATE [Concomitant]
  12. LACTULOSE [Concomitant]
     Route: 048
     Dates: start: 20070208
  13. MAGNESIUM SULFATE [Concomitant]
     Route: 042
     Dates: start: 20070501, end: 20070502
  14. SANDOCAL [Concomitant]
     Route: 048
     Dates: start: 20070502, end: 20070510
  15. PHOSPHATE-SANDOZ [Concomitant]
     Dates: start: 20070502, end: 20070510
  16. POTASSIUM ACETATE [Concomitant]
     Dates: start: 20070508, end: 20070510

REACTIONS (1)
  - NEUTROPENIC SEPSIS [None]
